FAERS Safety Report 6819613-2 (Version None)
Quarter: 2010Q3

REPORT INFORMATION
  Report Type: 
  Country: None (occurrence: None)
  Receive Date: 20100701
  Receipt Date: 20100324
  Transmission Date: 20110219
  Serious: No
  Sender: FDA-Public Use
  Company Number: US-TEVA-224370USA

PATIENT
  Sex: Male

DRUGS (6)
  1. AZILECT [Suspect]
     Indication: PARKINSON'S DISEASE
     Route: 048
     Dates: start: 20080401
  2. SINEMET [Concomitant]
     Dosage: 25/100, 1 1/2, 5 TIMES DAILY
  3. PRAMIPEXOLE DIHYDROCHLORIDE [Concomitant]
     Dosage: QID
  4. METOPROLOL TARTRATE [Concomitant]
     Dosage: BID
  5. EZETIMIBE/SIMVASTATIN [Concomitant]
     Dosage: 10-80
  6. ACETYLSALICYLIC ACID [Concomitant]

REACTIONS (1)
  - DENTAL CARIES [None]
